FAERS Safety Report 13819906 (Version 2)
Quarter: 2017Q4

REPORT INFORMATION
  Report Type: Spontaneous
  Country: CN (occurrence: CN)
  Receive Date: 20170731
  Receipt Date: 20171018
  Transmission Date: 20180320
  Serious: Yes (Hospitalization, Other)
  Sender: FDA-Public Use
  Company Number: CN-GLENMARK PHARMACEUTICALS-2017GMK028309

PATIENT
  Age: 12 Hour
  Sex: Male
  Weight: 3.32 kg

DRUGS (1)
  1. OXCARBAZEPINE. [Suspect]
     Active Substance: OXCARBAZEPINE
     Indication: SEIZURE
     Dosage: 150 MG, BID
     Route: 064

REACTIONS (3)
  - Foetal exposure during pregnancy [Unknown]
  - Withdrawal syndrome [Recovering/Resolving]
  - Drug withdrawal syndrome neonatal [Recovering/Resolving]
